FAERS Safety Report 6449209-6 (Version None)
Quarter: 2009Q4

REPORT INFORMATION
  Report Type: 
  Country: None (occurrence: None)
  Receive Date: 20091120
  Receipt Date: 20091110
  Transmission Date: 20100525
  Serious: Yes (Other)
  Sender: FDA-Public Use
  Company Number: PHHY2009FI45910

PATIENT
  Age: 71 Year
  Sex: Female
  Weight: 68 kg

DRUGS (5)
  1. ACLASTA [Suspect]
     Indication: OSTEOPOROSIS
     Dosage: UNK
     Dates: start: 20090923
  2. THYROXIN [Concomitant]
     Indication: HYPOTHYROIDISM
     Dosage: UNK
  3. ESTROGEL [Concomitant]
     Indication: HORMONE REPLACEMENT THERAPY
     Dosage: UNK
  4. VOLTAREN [Concomitant]
     Indication: OEDEMA PERIPHERAL
     Dosage: UNK
  5. PANADOL [Concomitant]
     Indication: PAIN
     Dosage: UNK

REACTIONS (19)
  - ABNORMAL SENSATION IN EYE [None]
  - ARTHRALGIA [None]
  - EYE PAIN [None]
  - HEMICEPHALALGIA [None]
  - HYPERMETROPIA [None]
  - INFLUENZA LIKE ILLNESS [None]
  - INFUSION SITE SWELLING [None]
  - INTRAOCULAR PRESSURE INCREASED [None]
  - LASER THERAPY [None]
  - MYALGIA [None]
  - OEDEMA PERIPHERAL [None]
  - PAIN IN EXTREMITY [None]
  - PYREXIA [None]
  - RETINAL INJURY [None]
  - SENSORY DISTURBANCE [None]
  - TOOTH ABSCESS [None]
  - TOOTHACHE [None]
  - VISUAL ACUITY REDUCED [None]
  - VISUAL IMPAIRMENT [None]
